FAERS Safety Report 8284522-1 (Version None)
Quarter: 2012Q2

REPORT INFORMATION
  Report Type: 
  Country: None (occurrence: None)
  Receive Date: 20120413
  Receipt Date: 20110907
  Transmission Date: 20120825
  Serious: No
  Sender: FDA-Public Use
  Company Number: US-ASTRAZENECA-2011SE48760

PATIENT
  Age: 52 Year
  Sex: Female
  Weight: 88.9 kg

DRUGS (9)
  1. LISINOPRIL [Suspect]
     Dosage: 20 MG TWO TABLETS AT MORNING BUT IF BP IS HIGH TAKES ANOTHER 20 MG AT NIGHT
     Route: 048
  2. MELATONIN [Concomitant]
     Indication: SLEEP DISORDER
  3. CLARITIN [Concomitant]
     Indication: HYPERSENSITIVITY
  4. LISINOPRIL [Suspect]
     Indication: BLOOD PRESSURE
     Route: 048
  5. PRILOSEC [Suspect]
     Indication: GASTROOESOPHAGEAL REFLUX DISEASE
     Route: 048
     Dates: start: 20090101, end: 20110101
  6. NEXIUM [Suspect]
     Route: 048
  7. PRILOSEC OTC [Suspect]
     Route: 048
     Dates: start: 20090101, end: 20100101
  8. LEVOTHYROXINE SODIUM [Concomitant]
     Indication: THYROID DISORDER
  9. MELOXIAL [Concomitant]
     Indication: ARTHRITIS

REACTIONS (7)
  - GASTROOESOPHAGEAL REFLUX DISEASE [None]
  - HYPERTENSION [None]
  - DYSPHONIA [None]
  - PRESSURE OF SPEECH [None]
  - SINUS OPERATION [None]
  - DRUG INEFFECTIVE [None]
  - THROAT IRRITATION [None]
